FAERS Safety Report 5503635-8 (Version None)
Quarter: 2007Q4

REPORT INFORMATION
  Report Type: 
  Country: None (occurrence: None)
  Receive Date: 20071101
  Receipt Date: 20071025
  Transmission Date: 20080405
  Serious: Yes (Other)
  Sender: FDA-Public Use
  Company Number: US-SANOFI-SYNTHELABO-A03200706114

PATIENT
  Age: 38 Year
  Sex: Female

DRUGS (3)
  1. AMBIEN [Suspect]
     Indication: INSOMNIA
     Route: 048
     Dates: start: 20060101, end: 20071018
  2. AMBIEN [Suspect]
     Dosage: TOOK 5 MG 1 TAB HS, THEN TOOK 2 MORE DOSES LATER ON
     Route: 048
     Dates: start: 20071019, end: 20071019
  3. ANTIDEPRESSANTS [Concomitant]
     Indication: DEPRESSION
     Dosage: UNK
     Route: 065

REACTIONS (3)
  - AMNESIA [None]
  - DRUG INEFFECTIVE [None]
  - ROAD TRAFFIC ACCIDENT [None]
